FAERS Safety Report 7200145-7 (Version None)
Quarter: 2010Q4

REPORT INFORMATION
  Report Type: 
  Country: None (occurrence: None)
  Receive Date: 20101228
  Receipt Date: 20101216
  Transmission Date: 20110411
  Serious: Yes (Other)
  Sender: FDA-Public Use
  Company Number: US-BAYER-2010-005276

PATIENT
  Sex: Male
  Weight: 78.7 kg

DRUGS (1)
  1. SORAFENIB (RAF KINASE INHIBITOR) [Suspect]
     Indication: METASTATIC SQUAMOUS CELL CARCINOMA
     Dosage: 400 MG, QOD
     Route: 048
     Dates: start: 20090528, end: 20101207

REACTIONS (1)
  - OSTEONECROSIS OF JAW [None]
